FAERS Safety Report 11891675 (Version 2)
Quarter: 2016Q1

REPORT INFORMATION
  Report Type: Not Available
  Country: ES (occurrence: ES)
  Receive Date: 20160106
  Receipt Date: 20160125
  Transmission Date: 20160526
  Serious: Yes (Hospitalization)
  Sender: FDA-Public Use
  Company Number: ES-MUNDIPHARMA DS AND PHARMACOVIGILANCE-GBR-2015-0033096

PATIENT
  Age: 74 Year
  Sex: Female

DRUGS (5)
  1. FORTECORTIN                        /00016001/ [Concomitant]
     Active Substance: DEXAMETHASONE
  2. MST 15 CONTINUS, COMPRIMIDOS DE 15 MG [Suspect]
     Active Substance: MORPHINE SULFATE
     Indication: METASTASES TO PERITONEUM
     Dosage: UNK
     Route: 065
     Dates: start: 201208
  3. SEGURIL [Concomitant]
     Active Substance: FUROSEMIDE
  4. OMEPRAZOLE. [Concomitant]
     Active Substance: OMEPRAZOLE
  5. PRIMPERAN [Concomitant]
     Active Substance: METOCLOPRAMIDE HYDROCHLORIDE

REACTIONS (3)
  - Overdose [Recovered/Resolved]
  - Bradykinesia [Recovered/Resolved]
  - Disorientation [Recovered/Resolved]

NARRATIVE: CASE EVENT DATE: 20130120
